FAERS Safety Report 8456678-9 (Version None)
Quarter: 2012Q2

REPORT INFORMATION
  Report Type: 
  Country: None (occurrence: None)
  Receive Date: 20120323
  Receipt Date: 20110915
  Transmission Date: 20120825
  Serious: Yes (Other)
  Sender: FDA-Public Use
  Company Number: 163-21880-11092196

PATIENT
  Age: 68 Year
  Sex: Male

DRUGS (6)
  1. LENALIDOMIDE [Suspect]
     Indication: MULTIPLE MYELOMA
     Dosage: 10 MG, 21D, PO
     Route: 048
     Dates: start: 20090917
  2. ASPIRIN [Concomitant]
  3. PLAVIX [Concomitant]
  4. TOPROL (METOPROLOL SUCCINATE)(UNKNOWN) [Concomitant]
  5. DIOVAN [Concomitant]
  6. NIASPAN (NICOTINIC ACID)(UNKNOWN) [Concomitant]

REACTIONS (2)
  - ASPARTATE AMINOTRANSFERASE INCREASED [None]
  - ALANINE AMINOTRANSFERASE INCREASED [None]
